FAERS Safety Report 13352184 (Version 1)
Quarter: 2017Q1

REPORT INFORMATION
  Report Type: Spontaneous
  Country: US (occurrence: US)
  Receive Date: 20170320
  Receipt Date: 20170320
  Transmission Date: 20170429
  Serious: No
  Sender: FDA-Public Use
  Company Number: US-SA-2016SA081875

PATIENT
  Age: 60 Year
  Sex: Male

DRUGS (1)
  1. NASACORT ALLERGY 24HR [Suspect]
     Active Substance: TRIAMCINOLONE ACETONIDE
     Indication: SINUSITIS
     Route: 065
     Dates: start: 20160417

REACTIONS (3)
  - Eye irritation [Unknown]
  - Sneezing [Unknown]
  - Expired product administered [Unknown]
